FAERS Safety Report 7981516-8 (Version None)
Quarter: 2011Q4

REPORT INFORMATION
  Report Type: 
  Country: None (occurrence: None)
  Receive Date: 20111215
  Receipt Date: 20111213
  Transmission Date: 20120403
  Serious: Yes (Death)
  Sender: FDA-Public Use
  Company Number: US-PFIZER INC-2011298887

PATIENT

DRUGS (2)
  1. DIFLUCAN [Suspect]
  2. NORVASC [Suspect]

REACTIONS (1)
  - DEATH [None]
